FAERS Safety Report 7907079-0 (Version None)
Quarter: 2011Q4

REPORT INFORMATION
  Report Type: 
  Country: None (occurrence: None)
  Receive Date: 20111110
  Receipt Date: 20110623
  Transmission Date: 20120403
  Serious: No
  Sender: FDA-Public Use
  Company Number: US-ASTRAZENECA-2011SE38101

PATIENT

DRUGS (3)
  1. SYMBICORT [Concomitant]
  2. LISINOPRIL [Suspect]
     Route: 048
  3. ACCOLATE [Suspect]
     Route: 048

REACTIONS (3)
  - MYALGIA [None]
  - BACK DISORDER [None]
  - ARTHROPATHY [None]
